FAERS Safety Report 6826302-7 (Version None)
Quarter: 2010Q3

REPORT INFORMATION
  Report Type: 
  Country: None (occurrence: None)
  Receive Date: 20100709
  Receipt Date: 20100630
  Transmission Date: 20110219
  Serious: Yes (Hospitalization, Other)
  Sender: FDA-Public Use
  Company Number: PHHO2010BR09892

PATIENT
  Sex: Male
  Weight: 76 kg

DRUGS (12)
  1. MYFORTIC [Suspect]
     Indication: RENAL TRANSPLANT
     Dosage: 720 MG, BID
     Route: 048
     Dates: start: 20081014
  2. MYFORTIC [Suspect]
     Dosage: 360 MG, BID
     Route: 048
     Dates: start: 20081126
  3. MYFORTIC [Suspect]
     Dosage: 360 MG, QD
     Route: 048
     Dates: start: 20081202, end: 20081202
  4. MYFORTIC [Suspect]
     Dosage: UNK
     Route: 048
     Dates: start: 20081216
  5. PREDNISONE [Suspect]
     Indication: RENAL TRANSPLANT
     Dosage: 15 MG, QD
     Route: 048
     Dates: start: 20080816
  6. PREDNISONE [Suspect]
     Dosage: 10 MG, QD
     Dates: start: 20081119
  7. MYCOPHENOLATE MOFETIL [Suspect]
     Indication: RENAL TRANSPLANT
     Dosage: UNK
     Route: 048
     Dates: start: 20080816, end: 20081013
  8. GANCICLOVIR [Suspect]
  9. ATENOLOL [Concomitant]
  10. FUROSEMIDE [Concomitant]
  11. OMEPRAZOLE [Concomitant]
  12. ACETYLSALICYLIC ACID [Concomitant]

REACTIONS (8)
  - ABDOMINAL PAIN [None]
  - ANAEMIA [None]
  - CYTOMEGALOVIRUS INFECTION [None]
  - DIARRHOEA [None]
  - GRANULOCYTOPENIA [None]
  - MALAISE [None]
  - PYREXIA [None]
  - WHITE BLOOD CELL COUNT DECREASED [None]
